FAERS Safety Report 11078129 (Version 1)
Quarter: 2015Q2

REPORT INFORMATION
  Report Type: Spontaneous
  Country: HR (occurrence: HR)
  Receive Date: 20150430
  Receipt Date: 20150430
  Transmission Date: 20150821
  Serious: Yes (Other)
  Sender: FDA-Public Use
  Company Number: HR-JNJFOC-20150420892

PATIENT
  Age: 38 Year
  Sex: Female

DRUGS (4)
  1. DECORTIN [Concomitant]
     Active Substance: PREDNISONE
     Indication: COLITIS ULCERATIVE
     Route: 048
     Dates: start: 20150210
  2. SALOFALK [Concomitant]
     Active Substance: MESALAMINE
     Indication: COLITIS ULCERATIVE
     Route: 048
     Dates: start: 20140530
  3. IMURAN [Concomitant]
     Active Substance: AZATHIOPRINE
     Indication: COLITIS ULCERATIVE
     Route: 048
     Dates: start: 20150210
  4. REMICADE [Suspect]
     Active Substance: INFLIXIMAB
     Indication: COLITIS ULCERATIVE
     Dosage: AT 0, 2 AND 6 WEEKS AND THEN EVERY 8 WEEKS
     Route: 042
     Dates: start: 20150320, end: 20150403

REACTIONS (3)
  - Dyspnoea [Recovered/Resolved]
  - Erythema [Unknown]
  - Choking [Recovered/Resolved]

NARRATIVE: CASE EVENT DATE: 2015
